FAERS Safety Report 8888819 (Version 2)
Quarter: 2012Q4

REPORT INFORMATION
  Report Type: 
  Country: LB (occurrence: LB)
  Receive Date: 20121106
  Receipt Date: 20121120
  Transmission Date: 20130627
  Serious: Yes (Disabling)
  Sender: FDA-Public Use
  Company Number: LB-AMGEN-LBNSP2012070525

PATIENT
  Age: 60 Year
  Sex: Female

DRUGS (4)
  1. ENBREL [Suspect]
     Indication: RHEUMATOID ARTHRITIS
     Dosage: 50 mg, weekly
     Route: 058
     Dates: start: 20121010, end: 20121017
  2. MEDROL                             /00049601/ [Concomitant]
     Dosage: 5 mg, qd
     Route: 048
  3. CONCOR [Concomitant]
     Dosage: 2.5 UNK,one tablet in the morning
  4. MICARDIS [Concomitant]
     Dosage: 92.5 UNK, one tablet in the morning

REACTIONS (3)
  - General physical condition abnormal [Recovered/Resolved]
  - Myalgia [Recovered/Resolved]
  - Erectile dysfunction [Recovered/Resolved]
